FAERS Safety Report 6076882-7 (Version None)
Quarter: 2009Q2

REPORT INFORMATION
  Report Type: 
  Country: None (occurrence: None)
  Receive Date: 20090211
  Receipt Date: 20090202
  Transmission Date: 20091009
  Serious: Yes (Hospitalization)
  Sender: FDA-Public Use
  Company Number: 2009SP000331

PATIENT
  Age: 54 Year
  Sex: Female

DRUGS (4)
  1. LUNESTA [Suspect]
     Indication: INSOMNIA
     Dosage: ORAL, 3 MG, ORAL
     Route: 048
     Dates: end: 20080101
  2. LUNESTA [Suspect]
     Indication: INSOMNIA
     Dosage: ORAL, 3 MG, ORAL
     Route: 048
     Dates: start: 20080101
  3. AMBIEN [Concomitant]
  4. AMBIEN CR [Concomitant]

REACTIONS (4)
  - DRUG INEFFECTIVE [None]
  - HANGOVER [None]
  - HYSTERECTOMY [None]
  - INSOMNIA [None]
